FAERS Safety Report 9507174 (Version 1)
Quarter: 2013Q1

REPORT INFORMATION
  Report Type: Spontaneous
  Country: US (occurrence: None)
  Receive Date: 20130305
  Receipt Date: 20130305
  Transmission Date: 20140127
  Serious: Yes (Disabling, Other)
  Sender: FDA-Public Use
  Company Number: 163-21880-12052708

PATIENT
  Age: 76 Year
  Sex: Male

DRUGS (10)
  1. REVLIMID (LENALIDOMIDE) (CAPSULES) [Suspect]
     Indication: MYELODYSPLASTIC SYNDROME
     Dosage: 5 MG, 1 IN 1 D, PO
     Route: 048
     Dates: start: 201202
  2. QUALAQUIN (QUININE SULFATE) (UNKNOWN) [Concomitant]
  3. METOPROLOL TARTRATE (METOPROLOL TARTRATE) (UNKNOWN) [Concomitant]
  4. VITAMIN B6 (PYRIDOXINE HYDROCHLORIDE) (UNKNOWN) [Concomitant]
  5. FOLIC ACID (FOLIC ACID) (UNKNOWN) [Concomitant]
  6. LANTUS INSULIN (INSULIN GLARGINE) (UNKNOWN) [Concomitant]
  7. PRANDIN (REPAGLINIDE) (UNKNOWN) [Concomitant]
  8. NEUPOGEN (FILGRASTIM) (UNKNOWN) [Concomitant]
  9. FILGRASTIM (FILGRASTIM) (UNKNOWN) [Concomitant]
  10. BLOOD TRANSFUSION (UNKNOWN) [Concomitant]

REACTIONS (3)
  - Red blood cell count decreased [None]
  - Neutrophil count decreased [None]
  - Fatigue [None]
